FAERS Safety Report 19903740 (Version 3)
Quarter: 2021Q4

REPORT INFORMATION
  Report Type: Spontaneous
  Country: IT (occurrence: IT)
  Receive Date: 20211001
  Receipt Date: 20211028
  Transmission Date: 20220303
  Serious: Yes (Death, Hospitalization, Other)
  Sender: FDA-Public Use
  Company Number: IT-ROCHE-2921117

PATIENT
  Age: 52 Year
  Sex: Male
  Weight: 68 kg

DRUGS (8)
  1. HEMLIBRA [Suspect]
     Active Substance: EMICIZUMAB-KXWH
     Indication: Haemophilia A with anti factor VIII
     Route: 058
     Dates: start: 201809, end: 202010
  2. HEMLIBRA [Suspect]
     Active Substance: EMICIZUMAB-KXWH
     Indication: Factor VIII deficiency
  3. SORAFENIB [Concomitant]
     Active Substance: SORAFENIB
     Dates: start: 20201117
  4. CABOZANTINIB [Concomitant]
     Active Substance: CABOZANTINIB
  5. AMLODIPINE [Concomitant]
     Active Substance: AMLODIPINE BESYLATE
     Dosage: 1 CP AT 8AM
  6. PANTOPRAZOLE [Concomitant]
     Active Substance: PANTOPRAZOLE
     Dosage: 1 CP AT 8AM
  7. BISOPROLOL [Concomitant]
     Active Substance: BISOPROLOL
     Dosage: 1 CP AT 8AM
  8. DEURSIL [Concomitant]
     Active Substance: URSODIOL
     Dosage: 1 CP X 2

REACTIONS (9)
  - Death [Fatal]
  - Neoplasm progression [Unknown]
  - Hepatocellular carcinoma [Unknown]
  - Haematoma muscle [Unknown]
  - Haematuria [Recovered/Resolved]
  - COVID-19 [Unknown]
  - Urinary tract infection [Unknown]
  - Haematoma muscle [Unknown]
  - Haematoma [Unknown]

NARRATIVE: CASE EVENT DATE: 20210129
